FAERS Safety Report 9092643 (Version 2)
Quarter: 2013Q2

REPORT INFORMATION
  Report Type: Spontaneous
  Country: US (occurrence: US)
  Receive Date: 20130131
  Receipt Date: 20130419
  Transmission Date: 20140414
  Serious: No
  Sender: FDA-Public Use
  Company Number: US-009507513-1301USA012376

PATIENT
  Age: 17 Year
  Sex: Female
  Weight: 82.99 kg

DRUGS (1)
  1. IMPLANON [Suspect]
     Indication: CONTRACEPTION
     Dosage: UNK
     Dates: start: 20130122

REACTIONS (3)
  - Anxiety [Recovering/Resolving]
  - Device difficult to use [Recovered/Resolved]
  - Needle issue [Recovered/Resolved]
